FAERS Safety Report 8795979 (Version 1)
Quarter: 2012Q4

REPORT INFORMATION
  Report Type: 
  Country: US (occurrence: US)
  Receive Date: 20120919
  Receipt Date: 20120919
  Transmission Date: 20130627
  Serious: Yes (Other)
  Sender: FDA-Public Use
  Company Number: US-ASTRAZENECA-2012SE71407

PATIENT
  Sex: Female
  Weight: 59 kg

DRUGS (10)
  1. NEXIUM [Suspect]
     Route: 048
  2. LISINOPRIL [Suspect]
     Route: 048
  3. ZESTORETIC [Suspect]
     Indication: BLOOD PRESSURE
     Dosage: 10-12.5 MG, HALF TABLET DAILY
     Route: 048
  4. MULTIVITAMINS [Concomitant]
  5. REMERON [Concomitant]
     Route: 048
  6. PERCOCET [Concomitant]
     Indication: PAIN
     Dosage: 10-325 MG FOUR TIMES DAILY
     Route: 048
  7. FISH OIL [Concomitant]
     Route: 048
  8. PROVENTIL [Concomitant]
     Dosage: 108 (90 BASE) MCG/ACT, 2 PUFFS EVERY FOUR HOURS AS NEEDED
     Route: 055
  9. CLONAZEPAM [Concomitant]
     Route: 048
  10. ERGOCALCIFEROL [Concomitant]
     Route: 048

REACTIONS (20)
  - Squamous cell carcinoma of skin [Unknown]
  - Vitamin D deficiency [Unknown]
  - Scar [Unknown]
  - Anxiety [Unknown]
  - Anxiety [Unknown]
  - Large intestine polyp [Unknown]
  - Hypertension [Unknown]
  - Post-traumatic stress disorder [Unknown]
  - Weight decreased [Unknown]
  - Haematochezia [Unknown]
  - Dupuytren^s contracture [Unknown]
  - Dyspnoea [Unknown]
  - Nicotine dependence [Unknown]
  - Fatigue [Unknown]
  - Gastrooesophageal reflux disease [Unknown]
  - Wheezing [Unknown]
  - Nausea [Unknown]
  - Diarrhoea [Unknown]
  - Abdominal pain [Unknown]
  - Intentional drug misuse [Unknown]
